FAERS Safety Report 10174629 (Version 2)
Quarter: 2014Q3

REPORT INFORMATION
  Report Type: Spontaneous
  Country: US (occurrence: US)
  Receive Date: 20140515
  Receipt Date: 20140821
  Transmission Date: 20150326
  Serious: Yes (Hospitalization, Other)
  Sender: FDA-Public Use
  Company Number: US-GLAXOSMITHKLINE-A1072805A

PATIENT
  Age: 58 Year
  Sex: Female

DRUGS (7)
  1. PRILOSEC [Concomitant]
     Active Substance: OMEPRAZOLE MAGNESIUM
  2. ALEVE [Concomitant]
     Active Substance: NAPROXEN SODIUM
  3. TYKERB [Suspect]
     Active Substance: LAPATINIB DITOSYLATE
     Indication: BONE CANCER
     Dosage: 1250MG PER DAY
     Route: 048
     Dates: start: 20130728
  4. ZOMETA [Concomitant]
     Active Substance: ZOLEDRONIC ACID
  5. KLOR-CON [Concomitant]
     Active Substance: POTASSIUM CHLORIDE
  6. ASPIRIN. [Concomitant]
     Active Substance: ASPIRIN
  7. FASLODEX [Concomitant]
     Active Substance: FULVESTRANT

REACTIONS (2)
  - Cholecystectomy [Recovering/Resolving]
  - Vomiting [Unknown]
